FAERS Safety Report 11343917 (Version 3)
Quarter: 2015Q4

REPORT INFORMATION
  Report Type: Spontaneous
  Country: GB (occurrence: GB)
  Receive Date: 20150806
  Receipt Date: 20151116
  Transmission Date: 20160304
  Serious: Yes (Disabling)
  Sender: FDA-Public Use
  Company Number: PHFR2015GB005806

PATIENT

DRUGS (14)
  1. SELINCRO [Suspect]
     Active Substance: NALMEFENE HYDROCHLORIDE DIHYDRATE
     Dosage: 18 MG, QD(1 TABLET DAILY AS REQUIRED )
     Route: 048
     Dates: start: 20150721
  2. OMEPRAZOLE. [Concomitant]
     Active Substance: OMEPRAZOLE
     Indication: PRODUCT USED FOR UNKNOWN INDICATION
     Dosage: DOSE REDUCED
  3. ZOPICLONE [Concomitant]
     Active Substance: ZOPICLONE
     Indication: PRODUCT USED FOR UNKNOWN INDICATION
     Dosage: 75 MG, TID
     Route: 065
     Dates: start: 20140206
  4. CARBAMAZEPINE. [Suspect]
     Active Substance: CARBAMAZEPINE
     Dosage: TAKE ONE IN THE MORNING AND TWO IN THE EVENING.
     Route: 048
     Dates: start: 20140206
  5. SELINCRO [Suspect]
     Active Substance: NALMEFENE HYDROCHLORIDE DIHYDRATE
     Dosage: UNK
     Route: 048
     Dates: start: 201509
  6. LANSOPRAZOLE. [Concomitant]
     Active Substance: LANSOPRAZOLE
     Dosage: ONE DOSAGE FORM ONCE DAILY.
     Dates: start: 20141115
  7. OMEPRAZOLE. [Concomitant]
     Active Substance: OMEPRAZOLE
     Dosage: 20 MG, QD
     Route: 065
  8. LANSOPRAZOLE. [Concomitant]
     Active Substance: LANSOPRAZOLE
     Dosage: ONE DOSAGE FORM (DF) ONCE DAILY
     Route: 065
     Dates: start: 20141115
  9. LANSOPRAZOLE. [Concomitant]
     Active Substance: LANSOPRAZOLE
     Indication: PRODUCT USED FOR UNKNOWN INDICATION
     Dosage: 1 DF, UNK
     Route: 065
     Dates: start: 20141115
  10. SELINCRO [Suspect]
     Active Substance: NALMEFENE HYDROCHLORIDE DIHYDRATE
     Indication: ALCOHOLISM
     Dosage: 18 MG, QD(1 TABLET DAILY AS REQUIRED )
     Route: 048
     Dates: start: 20150720, end: 20150721
  11. VENLAFAXINE [Concomitant]
     Active Substance: VENLAFAXINE HYDROCHLORIDE
     Indication: PRODUCT USED FOR UNKNOWN INDICATION
     Dosage: 37.5 MG, QD
     Route: 048
     Dates: start: 20140206
  12. ZOPICLONE [Concomitant]
     Active Substance: ZOPICLONE
  13. CARBAMAZEPINE. [Suspect]
     Active Substance: CARBAMAZEPINE
     Dosage: 200 MG, QD
     Route: 048
     Dates: start: 20140206
  14. CARBAMAZEPINE. [Suspect]
     Active Substance: CARBAMAZEPINE
     Indication: PRODUCT USED FOR UNKNOWN INDICATION
     Dosage: 3 DF (TAKE ONE IN THE MORNING AND TWO IN THE EVENING)
     Route: 065
     Dates: start: 20140206

REACTIONS (11)
  - Abdominal discomfort [Not Recovered/Not Resolved]
  - Feeling abnormal [Recovered/Resolved]
  - Dizziness postural [Recovering/Resolving]
  - Fatigue [Recovered/Resolved]
  - Monoplegia [Recovered/Resolved]
  - Poor quality sleep [Recovering/Resolving]
  - Amnesia [Recovered/Resolved]
  - Somnolence [Recovered/Resolved]
  - Depression [Recovering/Resolving]
  - Malaise [Recovering/Resolving]
  - Dizziness [Recovered/Resolved]

NARRATIVE: CASE EVENT DATE: 20150720
